FAERS Safety Report 7743716-1 (Version None)
Quarter: 2011Q3

REPORT INFORMATION
  Report Type: 
  Country: None (occurrence: None)
  Receive Date: 20110912
  Receipt Date: 20110902
  Transmission Date: 20111222
  Serious: Yes (Hospitalization)
  Sender: FDA-Public Use
  Company Number: GR-MPIJNJ-2011-04058

PATIENT

DRUGS (5)
  1. DEXAMETHASONE [Concomitant]
     Indication: MULTIPLE MYELOMA
     Dosage: 40 MG, UNK
     Route: 048
  2. TRIATEC                            /00885601/ [Concomitant]
     Indication: HYPERTENSION
     Dosage: UNK
     Dates: start: 20110824
  3. VELCADE [Suspect]
     Indication: MULTIPLE MYELOMA
     Dosage: 1.3 MG/M2, UNK
     Route: 042
     Dates: end: 20110802
  4. DOXORUBICIN HYDROCHLORIDE [Suspect]
     Indication: MULTIPLE MYELOMA
     Dosage: 30 MG/M2, UNK
     Route: 042
     Dates: end: 20110802
  5. NORVASC [Concomitant]
     Indication: HYPERTENSION
     Dosage: UNK
     Dates: end: 20110823

REACTIONS (3)
  - OPTIC NEURITIS [None]
  - PAPILLOEDEMA [None]
  - BLINDNESS [None]
